FAERS Safety Report 5781367-9 (Version None)
Quarter: 2008Q2

REPORT INFORMATION
  Report Type: 
  Country: None (occurrence: None)
  Receive Date: 20080619
  Receipt Date: 20080613
  Transmission Date: 20081010
  Serious: Yes (Other)
  Sender: FDA-Public Use
  Company Number: A0733028A

PATIENT
  Age: 63 Year
  Sex: Female

DRUGS (2)
  1. SODIUM FLUORIDE + POTASSI TOOTHPASTE TUBE (SODIUM FLUORIDE + POTASSI) [Suspect]
     Indication: DRUG USE FOR UNKNOWN INDICATION
     Dosage: UNK / UNK / DENTAL
     Route: 004
  2. STRONTIUM CHLORIDE PASTE (STRONTIUM CHLORIDE) [Suspect]
     Indication: DRUG USE FOR UNKNOWN INDICATION
     Dosage: UNK / UNK / DENTAL
     Route: 004

REACTIONS (4)
  - FEELING ABNORMAL [None]
  - PAIN IN JAW [None]
  - SENSITIVITY OF TEETH [None]
  - TOOTHACHE [None]
